FAERS Safety Report 19460676 (Version 3)
Quarter: 2021Q2

REPORT INFORMATION
  Report Type: Spontaneous
  Country: JP (occurrence: JP)
  Receive Date: 20210625
  Receipt Date: 20210626
  Transmission Date: 20210717
  Serious: Yes (Hospitalization)
  Sender: FDA-Public Use
  Company Number: JP-JNJFOC-20210641551

PATIENT
  Age: 64 Year
  Sex: Female

DRUGS (4)
  1. RISPERDAL CONSTA [Suspect]
     Active Substance: RISPERIDONE
  2. RISPERDAL CONSTA [Suspect]
     Active Substance: RISPERIDONE
  3. RISPERDAL CONSTA [Suspect]
     Active Substance: RISPERIDONE
     Indication: SCHIZOPHRENIA
     Dosage: RISPERIDONE:25MG
     Route: 030
     Dates: end: 20141203
  4. RISPERDAL CONSTA [Suspect]
     Active Substance: RISPERIDONE
     Dosage: RISPERIDONE:25MG
     Route: 030
     Dates: start: 2015, end: 20160427

REACTIONS (4)
  - Soliloquy [Unknown]
  - Therapy cessation [Unknown]
  - Hospitalisation [Unknown]
  - Disorganised speech [Unknown]

NARRATIVE: CASE EVENT DATE: 20141203
